FAERS Safety Report 10064602 (Version 1)
Quarter: 2014Q2

REPORT INFORMATION
  Report Type: Spontaneous
  Country: JP (occurrence: JP)
  Receive Date: 20140408
  Receipt Date: 20140408
  Transmission Date: 20141212
  Serious: Yes (Other)
  Sender: FDA-Public Use
  Company Number: JP-ELI_LILLY_AND_COMPANY-JP201404000926

PATIENT
  Age: 95 Year
  Sex: Female

DRUGS (1)
  1. EVISTA [Suspect]
     Indication: OSTEOPOROSIS
     Route: 048

REACTIONS (1)
  - Pancreatic carcinoma [Unknown]
